FAERS Safety Report 4432768-2 (Version None)
Quarter: 2004Q3

REPORT INFORMATION
  Report Type: 
  Country: None (occurrence: None)
  Receive Date: 20040823
  Receipt Date: 20040809
  Transmission Date: 20050211
  Serious: Yes (Hospitalization)
  Sender: FDA-Public Use
  Company Number: FLUV00304002360

PATIENT
  Age: 68 Year
  Sex: Female
  Weight: 45 kg

DRUGS (8)
  1. LUVOX [Suspect]
     Indication: DEPRESSION
     Dosage: 50 MG DAILY PO
     Route: 048
     Dates: start: 20040702, end: 20040705
  2. AMLODIPINE BESYLATE [Concomitant]
  3. GRANDAXI (TOFISOPAM) [Concomitant]
  4. DIOVAN [Concomitant]
  5. MEILAX (ETHYL LOFLAZEPATE) [Concomitant]
  6. NATRIX (INDAPAMIDE) [Concomitant]
  7. DOXAZOSIN MESYLATE [Concomitant]
  8. LANIZAC (RANITIDINE HYDROCHLORIDE) [Concomitant]

REACTIONS (26)
  - BLOOD ALDOSTERONE INCREASED [None]
  - BLOOD ALKALINE PHOSPHATASE INCREASED [None]
  - BLOOD ANTIDIURETIC HORMONE INCREASED [None]
  - BLOOD BILIRUBIN INCREASED [None]
  - BLOOD CHLORIDE DECREASED [None]
  - BLOOD POTASSIUM DECREASED [None]
  - BLOOD PRESSURE DECREASED [None]
  - BLOOD SODIUM DECREASED [None]
  - BLOOD THYROID STIMULATING HORMONE DECREASED [None]
  - BRAIN NEOPLASM [None]
  - CARDIAC FAILURE [None]
  - DEPRESSED LEVEL OF CONSCIOUSNESS [None]
  - DEPRESSION [None]
  - DIFFERENTIAL WHITE BLOOD CELL COUNT ABNORMAL [None]
  - DIZZINESS [None]
  - ELECTROLYTE IMBALANCE [None]
  - FACIAL PARESIS [None]
  - GLUCOSE URINE PRESENT [None]
  - HAEMATURIA [None]
  - INAPPROPRIATE ANTIDIURETIC HORMONE SECRETION [None]
  - NAUSEA [None]
  - PLATELET COUNT DECREASED [None]
  - SOMNOLENCE [None]
  - THYROXINE FREE DECREASED [None]
  - TRI-IODOTHYRONINE FREE DECREASED [None]
  - URINARY CASTS [None]
